FAERS Safety Report 7210341-0 (Version None)
Quarter: 2011Q1

REPORT INFORMATION
  Report Type: 
  Country: None (occurrence: None)
  Receive Date: 20110105
  Receipt Date: 20101229
  Transmission Date: 20110831
  Serious: Yes (Hospitalization)
  Sender: FDA-Public Use
  Company Number: US-B.I. PHARMACEUTICALS,INC./RIDGEFIELD-2011-BP-00034BP

PATIENT
  Sex: Female

DRUGS (14)
  1. CARDIZEM [Suspect]
  2. DUONEBS [Concomitant]
     Indication: CHRONIC OBSTRUCTIVE PULMONARY DISEASE
  3. NEXIUM [Concomitant]
     Indication: GASTROOESOPHAGEAL REFLUX DISEASE
  4. LISINOPRIL AND HYDROCHLOROTHIAZIDE [Concomitant]
     Indication: HYPERTENSION
  5. TYLOX [Concomitant]
     Indication: PAIN
  6. SPIRIVA [Suspect]
     Indication: CHRONIC OBSTRUCTIVE PULMONARY DISEASE
     Dosage: 18 MCG
     Route: 055
     Dates: start: 20101201
  7. HYDRALAZINE [Concomitant]
     Indication: HYPERTENSION
  8. ASPIRIN [Concomitant]
     Indication: PROPHYLAXIS
  9. VITAMIN D [Concomitant]
     Indication: PROPHYLAXIS
  10. SYNTHROID [Concomitant]
     Indication: HYPOTHYROIDISM
  11. NORVASC [Concomitant]
     Indication: HYPERTENSION
  12. CRESTOR [Concomitant]
     Indication: BLOOD CHOLESTEROL INCREASED
  13. SYMBICORT [Suspect]
     Indication: CHRONIC OBSTRUCTIVE PULMONARY DISEASE
  14. COMBIVENT [Suspect]
     Indication: CHRONIC OBSTRUCTIVE PULMONARY DISEASE

REACTIONS (6)
  - DYSPHONIA [None]
  - NAUSEA [None]
  - CONSTIPATION [None]
  - URINARY RETENTION [None]
  - DRY MOUTH [None]
  - HEART RATE IRREGULAR [None]
